FAERS Safety Report 5018887-0 (Version None)
Quarter: 2006Q2

REPORT INFORMATION
  Report Type: 
  Country: None (occurrence: None)
  Receive Date: 20060531
  Receipt Date: 20060517
  Transmission Date: 20061013
  Serious: Yes (Life-Threatening, Other)
  Sender: FDA-Public Use
  Company Number: TRP_0784_2006

PATIENT
  Age: 58 Year
  Sex: Male

DRUGS (4)
  1. RIBASPHERE [Suspect]
     Indication: HEPATITIS C
     Dosage: DF PO
     Route: 048
     Dates: start: 20050120, end: 20050101
  2. PEG-INTRON [Suspect]
     Indication: HEPATITIS C
     Dosage: DF QWK SC
     Route: 058
     Dates: start: 20050120, end: 20050706
  3. ASPIRIN [Concomitant]
  4. CENTRUM SILVER [Concomitant]

REACTIONS (10)
  - ANAEMIA [None]
  - BLOOD CREATINE PHOSPHOKINASE INCREASED [None]
  - CARDIAC DISORDER [None]
  - GENERAL PHYSICAL HEALTH DETERIORATION [None]
  - HYPERTENSION [None]
  - HYPOTHYROIDISM [None]
  - MIDDLE INSOMNIA [None]
  - MORBID THOUGHTS [None]
  - MUSCLE SPASMS [None]
  - MYOCARDIAL INFARCTION [None]
